FAERS Safety Report 9212999 (Version 1)
Quarter: 2013Q1

REPORT INFORMATION
  Report Type: Spontaneous
  Country: US (occurrence: None)
  Receive Date: 20120824
  Receipt Date: 20120824
  Transmission Date: 20140127
  Serious: Yes (Hospitalization)
  Sender: FDA-Public Use
  Company Number: A-NJ2011-53455

PATIENT
  Age: 75 Year
  Sex: Female

DRUGS (5)
  1. VELETRI [Suspect]
     Indication: PULMONARY ARTERIAL HYPERTENSION
     Dosage: 7NG/KG PER MIN, IV DRIP
     Route: 041
     Dates: start: 20120702
  2. LETAIRIS (AMBRISENTAN) [Concomitant]
  3. SILDENAFIL (SILDENAFIL) [Concomitant]
  4. ACETYLSALICYLIC ACID (ACETYLSALICYLIC ACID) [Concomitant]
  5. ADCIRCA (TADALAFIL) [Concomitant]

REACTIONS (2)
  - Device related infection [None]
  - Medical device complication [None]
